FAERS Safety Report 11335545 (Version 3)
Quarter: 2016Q1

REPORT INFORMATION
  Report Type: Report from Study
  Country: US (occurrence: US)
  Receive Date: 20150804
  Receipt Date: 20160323
  Transmission Date: 20160525
  Serious: No
  Sender: FDA-Public Use
  Company Number: US-AMGEN-USASP2015074604

PATIENT
  Age: 56 Year
  Sex: Female

DRUGS (1)
  1. ENBREL [Suspect]
     Active Substance: ETANERCEPT
     Indication: ANKYLOSING SPONDYLITIS
     Dosage: 50 MG, QWK
     Route: 065
     Dates: start: 20150708

REACTIONS (8)
  - Injection site bruising [Unknown]
  - Joint stiffness [Unknown]
  - Injection site discolouration [Unknown]
  - Wrong technique in product usage process [Unknown]
  - Musculoskeletal stiffness [Unknown]
  - Nervousness [Unknown]
  - Anxiety [Unknown]
  - Injection site haemorrhage [Unknown]

NARRATIVE: CASE EVENT DATE: 20150716
